FAERS Safety Report 9826252 (Version 3)
Quarter: 2014Q1

REPORT INFORMATION
  Report Type: Report from Study
  Country: US (occurrence: US)
  Receive Date: 20140117
  Receipt Date: 20140128
  Transmission Date: 20141002
  Serious: Yes (Hospitalization)
  Sender: FDA-Public Use
  Company Number: US-IPSEN BIOPHARMACEUTICALS, INC.-2013-4292

PATIENT
  Age: 64 Year
  Sex: Female

DRUGS (2)
  1. SOMATULINE DEPOT INJECTION (90MG) [Suspect]
     Indication: ACROMEGALY
     Dosage: 90 MG
     Route: 058
     Dates: start: 20130623, end: 20130919
  2. SOMATULINE DEPOT INJECTION (90MG) [Suspect]
     Dosage: 60 MG
     Route: 058
     Dates: start: 20130919

REACTIONS (2)
  - Osteoarthritis [Unknown]
  - Hypoglycaemia [Unknown]
